FAERS Safety Report 5477957-3 (Version None)
Quarter: 2007Q4

REPORT INFORMATION
  Report Type: 
  Country: None (occurrence: None)
  Receive Date: 20071005
  Receipt Date: 20070924
  Transmission Date: 20080405
  Serious: Yes (Hospitalization)
  Sender: FDA-Public Use
  Company Number: US-JNJFOC-20070905425

PATIENT
  Sex: Male
  Weight: 90.72 kg

DRUGS (1)
  1. DURAGESIC-100 [Suspect]
     Indication: BACK PAIN
     Route: 062

REACTIONS (4)
  - CELLULITIS [None]
  - DRUG TOXICITY [None]
  - EUPHORIC MOOD [None]
  - INCORRECT DRUG ADMINISTRATION DURATION [None]
